FAERS Safety Report 4467213-4 (Version None)
Quarter: 2004Q4

REPORT INFORMATION
  Report Type: 
  Country: None (occurrence: None)
  Receive Date: 20041006
  Receipt Date: 20031017
  Transmission Date: 20050328
  Serious: Yes (Life-Threatening)
  Sender: FDA-Public Use
  Company Number: JP-ABBOTT-03P-087-0237897-00

PATIENT
  Sex: Male

DRUGS (5)
  1. KALETRA [Suspect]
     Indication: HIV INFECTION
     Route: 048
     Dates: start: 20030901, end: 20031106
  2. EFAVIRENZ [Suspect]
     Indication: HIV INFECTION
     Route: 048
     Dates: start: 20030901, end: 20030917
  3. EFAVIRENZ [Suspect]
     Route: 048
     Dates: start: 20030918, end: 20031106
  4. LAMIVUDINE [Suspect]
     Indication: HIV INFECTION
     Route: 048
     Dates: start: 20030901, end: 20031106
  5. ABACAVIR SULFATE [Suspect]
     Indication: HIV INFECTION
     Route: 048
     Dates: start: 20030901, end: 20031106

REACTIONS (4)
  - MALAISE [None]
  - NIGHTMARE [None]
  - STOMACH DISCOMFORT [None]
  - SUBDURAL HAEMATOMA [None]
